FAERS Safety Report 23608436 (Version 2)
Quarter: 2024Q1

REPORT INFORMATION
  Report Type: Spontaneous
  Country: US (occurrence: US)
  Receive Date: 20240307
  Receipt Date: 20240320
  Transmission Date: 20240410
  Serious: Yes (Hospitalization, Other)
  Sender: FDA-Public Use
  Company Number: US-BIOGEN-2024BI01253804

PATIENT
  Age: 59 Year
  Sex: Male

DRUGS (23)
  1. QALSODY [Suspect]
     Active Substance: TOFERSEN
     Indication: Amyotrophic lateral sclerosis
     Route: 050
     Dates: start: 20231031
  2. RADICAVA ORS [Concomitant]
     Active Substance: EDARAVONE
     Indication: Amyotrophic lateral sclerosis
     Dosage: 105 MG/ 5ML
     Route: 050
  3. RELYVRIO [Concomitant]
     Active Substance: SODIUM PHENYLBUTYRATE\TAURURSODIOL
     Indication: Amyotrophic lateral sclerosis
     Dosage: 3-1 G PER PACKET; 1 PACKET DAILY FOR 3 WEEKS, THEN 1 PACKET IN THE MORNING AND 1 PACKET AT NIGHT ...
     Route: 050
  4. LIPITOR [Concomitant]
     Active Substance: ATORVASTATIN CALCIUM
     Indication: Product used for unknown indication
     Route: 050
     Dates: start: 20240116
  5. WELLBUTRIN XL [Concomitant]
     Active Substance: BUPROPION HYDROCHLORIDE
     Indication: Seasonal affective disorder
     Route: 050
     Dates: start: 20220531
  6. TUMS EX [Concomitant]
     Active Substance: CALCIUM CARBONATE
     Indication: Dyspepsia
     Route: 050
  7. VITAMIN D3 [Concomitant]
     Active Substance: CHOLECALCIFEROL
     Indication: Product used for unknown indication
     Route: 050
     Dates: start: 20230616
  8. VIBRAMYCIN [Concomitant]
     Active Substance: DOXYCYCLINE
     Indication: Skin infection
     Dosage: FOR 180 DAYS
     Route: 050
     Dates: start: 20230929
  9. JARDIANCE [Concomitant]
     Active Substance: EMPAGLIFLOZIN
     Indication: Type 2 diabetes mellitus
     Route: 050
     Dates: start: 20220420
  10. TRICOR [Concomitant]
     Active Substance: FENOFIBRATE
     Indication: Primary hypercholesterolaemia
     Route: 050
     Dates: start: 20231006
  11. TOUJEO MAX [Concomitant]
     Active Substance: INSULIN GLARGINE
     Indication: Type 2 diabetes mellitus
     Dosage: 36 UNITS
     Route: 050
     Dates: start: 20230721
  12. PREVACID [Concomitant]
     Active Substance: LANSOPRAZOLE
     Indication: Gastrooesophageal reflux disease
     Route: 050
     Dates: start: 20220531
  13. LISINOPRIL [Concomitant]
     Active Substance: LISINOPRIL
     Indication: Hypertension
     Route: 050
     Dates: start: 20220510
  14. KLS AllerClear [Concomitant]
     Indication: Seasonal allergy
     Dosage: NIGHTLY
     Route: 050
  15. ATIVAN [Concomitant]
     Active Substance: LORAZEPAM
     Indication: Anxiety
     Route: 050
     Dates: start: 20231109
  16. GLUCOPHAGE XR [Concomitant]
     Active Substance: METFORMIN HYDROCHLORIDE
     Indication: Type 2 diabetes mellitus
     Dosage: NIGHTLY
     Route: 050
     Dates: start: 20220531
  17. METHYLCOBALAMIN [Concomitant]
     Active Substance: METHYLCOBALAMIN
     Indication: Supplementation therapy
     Route: 050
  18. NARCAN [Concomitant]
     Active Substance: NALOXONE HYDROCHLORIDE
     Indication: Overdose
     Dosage: 1 SPRAY BY NASAL ROUTE AS NEEDED
     Route: 050
     Dates: start: 20230721
  19. MIRALAX [Concomitant]
     Active Substance: POLYETHYLENE GLYCOL 3350
     Indication: Constipation
     Dosage: MIX 17 GRAMS INTO 4-8 OZ OF JUICE OR WATER
     Route: 050
     Dates: start: 20230616
  20. DEPO-TESTOSTERONE [Concomitant]
     Active Substance: TESTOSTERONE CYPIONATE
     Indication: Male reproductive tract disorder
     Dosage: 1 ML (200MG/ML) INTO THE MUSCLE EVERY 10-14 DAYS
     Route: 050
     Dates: start: 20220514
  21. ZANAFLEX [Concomitant]
     Active Substance: TIZANIDINE HYDROCHLORIDE
     Indication: Muscle spasticity
     Route: 050
     Dates: start: 20230802, end: 20240307
  22. SYNTHROID [Concomitant]
     Active Substance: LEVOTHYROXINE SODIUM
     Indication: Hypothyroidism
     Route: 050
     Dates: start: 20220628
  23. VITAMIN B12 [Concomitant]
     Active Substance: CYANOCOBALAMIN
     Indication: Supplementation therapy
     Dosage: DISINTEGRATING TABLET
     Route: 050

REACTIONS (2)
  - Meningitis chemical [Recovered/Resolved]
  - Papilloedema [Unknown]

NARRATIVE: CASE EVENT DATE: 20240111
